FAERS Safety Report 13486521 (Version 1)
Quarter: 2017Q2

REPORT INFORMATION
  Report Type: Spontaneous
  Country: GB (occurrence: GB)
  Receive Date: 20170426
  Receipt Date: 20170426
  Transmission Date: 20170830
  Serious: Yes (Other)
  Sender: FDA-Public Use
  Company Number: GB-TEVA-761238ACC

PATIENT
  Age: 27 Year
  Sex: Female
  Weight: 42 kg

DRUGS (18)
  1. DERMOL [Concomitant]
     Active Substance: BENZALKONIUM CHLORIDE\CHLORHEXIDINE HYDROCHLORIDE\ISOPROPYL MYRISTATE\PARAFFIN
     Dosage: USE AS DIRECTED.
     Dates: start: 20160916
  2. PROTOPIC [Concomitant]
     Active Substance: TACROLIMUS
     Dosage: APPLY THINLY ONCE A DAY AND REDUCE TO AS REQUIRED.
     Dates: start: 20161101
  3. MONTELUKAST [Suspect]
     Active Substance: MONTELUKAST SODIUM
     Indication: ASTHMA
     Dates: start: 20170317
  4. DERMOVATE [Concomitant]
     Active Substance: CLOBETASOL
     Dosage: 1 DOSAGE FORMS DAILY;
     Dates: start: 20161003
  5. DOUBLEBASE [Concomitant]
     Active Substance: ISOPROPYL MYRISTATE\PARAFFIN
     Dosage: 2 DOSAGE FORMS DAILY;
     Dates: start: 20161003
  6. PROCHLORPERAZINE. [Concomitant]
     Active Substance: PROCHLORPERAZINE
     Dosage: 3 DOSAGE FORMS DAILY;
     Dates: start: 20170208, end: 20170222
  7. SYMBICORT [Concomitant]
     Active Substance: BUDESONIDE\FORMOTEROL FUMARATE DIHYDRATE
     Dosage: 2 DOSAGE FORMS DAILY;
     Route: 055
     Dates: start: 20160916
  8. TACROLIMUS. [Concomitant]
     Active Substance: TACROLIMUS
     Indication: ECZEMA
     Dosage: 1 DOSAGE FORMS DAILY;
     Dates: start: 20161003
  9. HYDROMOL EMOLLIENT [Concomitant]
     Dosage: 1 DOSAGE FORMS DAILY;
  10. FERROUS SULFATE. [Concomitant]
     Active Substance: FERROUS SULFATE
     Dosage: 2 DOSAGE FORMS DAILY;
     Dates: start: 20170208
  11. HYDROXYZINE [Concomitant]
     Active Substance: HYDROXYZINE HYDROCHLORIDE
     Dosage: 1 DOSAGE FORMS DAILY;
     Dates: start: 20161003
  12. IBUPROFEN. [Concomitant]
     Active Substance: IBUPROFEN
     Dosage: 3 DOSAGE FORMS DAILY;
     Dates: start: 20170106, end: 20170203
  13. SYSTANE (HYPROMELLOSE 2910 (4000 MPA.S)) [Concomitant]
     Active Substance: HYPROMELLOSE 2910 (4000 MPA.S)
     Dosage: USE AS DIRECTED.
     Dates: start: 20161101
  14. DIAZEPAM. [Concomitant]
     Active Substance: DIAZEPAM
     Dosage: 2 DOSAGE FORMS DAILY;
     Dates: start: 20170313, end: 20170327
  15. HYDROCORTISONE. [Concomitant]
     Active Substance: HYDROCORTISONE
     Dosage: 2 DOSAGE FORMS DAILY;
     Dates: start: 20170316, end: 20170326
  16. COCODAMOL [Concomitant]
     Active Substance: ACETAMINOPHEN\CODEINE PHOSPHATE
     Dosage: TAKE ONE OR TWO TABLETS FOUR TIMES A DAY.
     Dates: start: 20170323, end: 20170324
  17. VENTOLIN [Concomitant]
     Active Substance: ALBUTEROL SULFATE
     Route: 055
     Dates: start: 20160916
  18. ZOPICLONE [Concomitant]
     Active Substance: ZOPICLONE
     Dosage: 1 DOSAGE FORMS DAILY;
     Dates: start: 20170323

REACTIONS (2)
  - Rash [Unknown]
  - Eczema [Unknown]

NARRATIVE: CASE EVENT DATE: 20170326
